FAERS Safety Report 24782338 (Version 1)
Quarter: 2024Q4

REPORT INFORMATION
  Report Type: Spontaneous
  Country: GB (occurrence: GB)
  Receive Date: 20241227
  Receipt Date: 20241227
  Transmission Date: 20250115
  Serious: Yes (Other)
  Sender: ORGANON
  Company Number: None

PATIENT
  Age: 69 Year
  Sex: Female
  Weight: 75 kg

DRUGS (4)
  1. EZETIMIBE [Suspect]
     Active Substance: EZETIMIBE
     Dosage: 1 DOSAGE FORM, QD
     Dates: start: 20240411, end: 20240425
  2. ADJUVANTED QUADRIVALENT INFLUENZA VACCINE [Concomitant]
     Dosage: ADJUVANTED QUADRIVALENT INFLUENZA VACCINE (SURFACE ANTIGEN, INACTIVATED DOSAGE TEXT - 0.5ML. SUSPENS
     Dates: start: 20241005, end: 20241117
  3. SPIKEVAX [Concomitant]
     Active Substance: CX-046684
     Dosage: 0.1MG/ML DISPERSION FOR INJECTION MULTIDOSE VIALS
     Route: 030
     Dates: start: 20241011, end: 20241011
  4. ALBUTEROL SULFATE [Concomitant]
     Active Substance: ALBUTEROL SULFATE
     Indication: Asthma
     Dosage: VENTOLIN - DRUG DOSAGE TEXT ONE OR TWO PUFFS TO BE INHALED FOUR TIMES A DAY WHEN REQUIRED. IF NEEDIN
     Dates: start: 20241209, end: 20241209

REACTIONS (1)
  - Gastrointestinal disorder [Recovered/Resolved]

NARRATIVE: CASE EVENT DATE: 20240418
